FAERS Safety Report 4583732-4 (Version None)
Quarter: 2005Q1

REPORT INFORMATION
  Report Type: 
  Country: None (occurrence: None)
  Receive Date: 20050211
  Receipt Date: 20050131
  Transmission Date: 20050727
  Serious: Yes (Death, Hospitalization)
  Sender: FDA-Public Use
  Company Number: CIP05000226

PATIENT
  Age: 80 Year
  Sex: Female

DRUGS (3)
  1. NITROFURANTOIN (MONOHYDRATE/MACROCRYSTALS) [Suspect]
     Indication: URINARY TRACT INFECTION
     Dosage: 100 MG DAILY, ORAL
     Route: 048
     Dates: start: 20050111, end: 20050122
  2. OTHER HAEMATOLOGICAL AGENTS [Concomitant]
  3. DRUG NOS [Concomitant]

REACTIONS (6)
  - ANOREXIA [None]
  - CHILLS [None]
  - DYSPNOEA [None]
  - FEELING ABNORMAL [None]
  - MYOCARDIAL INFARCTION [None]
  - NAUSEA [None]
